FAERS Safety Report 7404317-8 (Version None)
Quarter: 2011Q2

REPORT INFORMATION
  Report Type: 
  Country: None (occurrence: None)
  Receive Date: 20110408
  Receipt Date: 20110329
  Transmission Date: 20111010
  Serious: Yes (Other)
  Sender: FDA-Public Use
  Company Number: US-ROCHE-758678

PATIENT
  Age: 55 Year
  Sex: Female
  Weight: 95.4 kg

DRUGS (8)
  1. LEXAPRO [Concomitant]
  2. MAGNESIUM [Concomitant]
  3. PREVACID [Concomitant]
  4. BEVACIZUMAB [Suspect]
     Indication: OVARIAN STROMAL CANCER
     Dosage: OVER 30-90 MINUTES ON DAY 1, 1430 MG
     Route: 042
     Dates: start: 20091221, end: 20101230
  5. CRESTOR [Concomitant]
  6. DYNACIRC [Concomitant]
  7. IRON SUPPLEMENT [Concomitant]
  8. TOPROL-XL [Concomitant]

REACTIONS (2)
  - HEARING IMPAIRED [None]
  - TINNITUS [None]
